FAERS Safety Report 6033401-9 (Version None)
Quarter: 2009Q1

REPORT INFORMATION
  Report Type: 
  Country: None (occurrence: None)
  Receive Date: 20090107
  Receipt Date: 20080701
  Transmission Date: 20090719
  Serious: Yes (Other)
  Sender: FDA-Public Use
  Company Number: 30568 - 1

PATIENT
  Age: 51 Year
  Sex: Female
  Weight: 74 kg

DRUGS (1)
  1. VINORELBINE TARTRATE [Suspect]
     Indication: BREAST CANCER
     Dosage: 28MG
     Dates: start: 20050826, end: 20060609

REACTIONS (1)
  - NEUROPATHY PERIPHERAL [None]
